FAERS Safety Report 12059136 (Version 1)
Quarter: 2016Q1

REPORT INFORMATION
  Report Type: Spontaneous
  Country: US (occurrence: None)
  Receive Date: 20160209
  Receipt Date: 20160209
  Transmission Date: 20160526
  Serious: No
  Sender: FDA-Public Use
  Company Number: None

PATIENT
  Sex: Male

DRUGS (1)
  1. VENLAFAXINE ER [Suspect]
     Active Substance: VENLAFAXINE HYDROCHLORIDE
     Route: 048
     Dates: start: 20151210, end: 20160115

REACTIONS (5)
  - Product substitution issue [None]
  - Dyspnoea [None]
  - Product solubility abnormal [None]
  - Headache [None]
  - Product quality issue [None]
